APPROVED DRUG PRODUCT: HYDROXYZINE HYDROCHLORIDE
Active Ingredient: HYDROXYZINE HYDROCHLORIDE
Strength: 50MG/ML
Dosage Form/Route: INJECTABLE;INJECTION
Application: A088185 | Product #001
Applicant: FRESENIUS KABI USA LLC
Approved: Mar 31, 1983 | RLD: No | RS: No | Type: DISCN